FAERS Safety Report 14352191 (Version 1)
Quarter: 2018Q1

REPORT INFORMATION
  Report Type: Spontaneous
  Country: US (occurrence: US)
  Receive Date: 20180104
  Receipt Date: 20180104
  Transmission Date: 20180509
  Serious: No
  Sender: FDA-Public Use
  Company Number: US-ALLERGAN-1680368US

PATIENT
  Sex: Female
  Weight: 58.96 kg

DRUGS (1)
  1. ACZONE [Suspect]
     Active Substance: DAPSONE
     Indication: RASH
     Dosage: UNK
     Route: 065
     Dates: start: 20161121, end: 20161125

REACTIONS (2)
  - Acne [Not Recovered/Not Resolved]
  - Drug dose omission [Unknown]
